FAERS Safety Report 7728174-5 (Version None)
Quarter: 2011Q3

REPORT INFORMATION
  Report Type: 
  Country: None (occurrence: None)
  Receive Date: 20110905
  Receipt Date: 20110822
  Transmission Date: 20111222
  Serious: Yes (Other)
  Sender: FDA-Public Use
  Company Number: US-RB-027740-11

PATIENT
  Age: 79 Year
  Sex: Male

DRUGS (2)
  1. MUCINEX DM [Suspect]
     Indication: PARANASAL SINUS HYPERSECRETION
     Dosage: PATIENT TOOK THE PRODUCT ON 19-AUG-2011 AND 20-AUG-2011
     Route: 048
  2. CEPHALEXIN [Concomitant]
     Indication: PARONYCHIA

REACTIONS (2)
  - SYNCOPE [None]
  - DIZZINESS [None]
